FAERS Safety Report 25117716 (Version 1)
Quarter: 2025Q1

REPORT INFORMATION
  Report Type: Report from Study
  Country: US (occurrence: US)
  Receive Date: 20250325
  Receipt Date: 20250325
  Transmission Date: 20250409
  Serious: Yes (Other)
  Sender: RANBAXY
  Company Number: US-SUN PHARMACEUTICAL INDUSTRIES LTD-2025R1-500473

PATIENT
  Age: 17 Year
  Sex: Male

DRUGS (4)
  1. IRINOTECAN [Suspect]
     Active Substance: IRINOTECAN
     Indication: Medulloblastoma recurrent
     Route: 042
  2. TEMOZOLOMIDE [Suspect]
     Active Substance: TEMOZOLOMIDE
     Indication: Medulloblastoma recurrent
     Route: 048
  3. CYCLOPHOSPHAMIDE [Suspect]
     Active Substance: CYCLOPHOSPHAMIDE
     Indication: Medulloblastoma recurrent
     Route: 042
  4. ETOPOSIDE [Suspect]
     Active Substance: ETOPOSIDE
     Indication: Medulloblastoma recurrent
     Route: 048

REACTIONS (2)
  - Febrile neutropenia [Unknown]
  - Therapy partial responder [Unknown]
